FAERS Safety Report 14276861 (Version 1)
Quarter: 2017Q4

REPORT INFORMATION
  Report Type: Spontaneous
  Country: US (occurrence: US)
  Receive Date: 20171212
  Receipt Date: 20171212
  Transmission Date: 20180321
  Serious: Yes (Life-Threatening, Hospitalization)
  Sender: FDA-Public Use
  Company Number: BAXTER-2017BAX041225

PATIENT
  Age: 55 Year
  Sex: Female

DRUGS (6)
  1. CLONIDINE. [Suspect]
     Active Substance: CLONIDINE
     Indication: ANALGESIC THERAPY
     Route: 037
  2. HYDROMORPHONE [Suspect]
     Active Substance: HYDROMORPHONE
     Indication: ANALGESIC THERAPY
     Route: 037
  3. BUPIVACAINE HYDROCHLORIDE IN 8.25% DEXTROSE INJECTION USP [Suspect]
     Active Substance: BUPIVACAINE HYDROCHLORIDE
     Indication: ANALGESIC THERAPY
     Route: 037
  4. BUPIVACAINE HYDROCHLORIDE IN 8.25% DEXTROSE INJECTION USP [Suspect]
     Active Substance: BUPIVACAINE HYDROCHLORIDE
     Dosage: DOSE REDUCED TO ONE TENTH ITS PREVIOUS DOSE
     Route: 037
  5. CLONIDINE. [Suspect]
     Active Substance: CLONIDINE
     Dosage: DOSE REDUCED TO ONE TENTH ITS PREVIOUS DOSE
     Route: 037
  6. HYDROMORPHONE [Suspect]
     Active Substance: HYDROMORPHONE
     Dosage: DOSE REDUCED TO ONE TENTH ITS PREVIOUS DOSE

REACTIONS (2)
  - Medication error [None]
  - Hypertensive encephalopathy [None]
